FAERS Safety Report 25572989 (Version 1)
Quarter: 2025Q3

REPORT INFORMATION
  Report Type: Spontaneous
  Country: US (occurrence: None)
  Receive Date: 20250716
  Receipt Date: 20250716
  Transmission Date: 20251021
  Serious: No
  Sender: FDA-CTU
  Company Number: None

PATIENT
  Age: 92 Year
  Sex: Male

DRUGS (1)
  1. TAGRISSO [Suspect]
     Active Substance: OSIMERTINIB
     Indication: Lung neoplasm malignant
     Dates: start: 20250306, end: 20250711

REACTIONS (3)
  - Hypomagnesaemia [None]
  - Bedridden [None]
  - Drug monitoring procedure not performed [None]

NARRATIVE: CASE EVENT DATE: 20250711
